FAERS Safety Report 4799111-0 (Version None)
Quarter: 2005Q4

REPORT INFORMATION
  Report Type: 
  Country: None (occurrence: None)
  Receive Date: 20051014
  Receipt Date: 20050314
  Transmission Date: 20060501
  Serious: Yes (Life-Threatening, Hospitalization, Other)
  Sender: FDA-Public Use
  Company Number: NO-MERCK-0503NOR00038

PATIENT
  Age: 55 Year
  Sex: Female

DRUGS (6)
  1. VIOXX [Suspect]
     Indication: POLYARTHRITIS
     Route: 048
     Dates: start: 20001001, end: 20031201
  2. VIOXX [Suspect]
     Indication: OSTEOARTHRITIS
     Route: 048
     Dates: start: 20001001, end: 20031201
  3. TRAMADOL HYDROCHLORIDE [Concomitant]
     Route: 048
  4. TRAMADOL HYDROCHLORIDE [Concomitant]
     Route: 048
  5. ESTRADIOL AND NORETHINDRONE ACETATE [Concomitant]
     Route: 065
  6. AMITRIPTYLINE HYDROCHLORIDE [Concomitant]
     Route: 065

REACTIONS (6)
  - CARDIOVASCULAR DISORDER [None]
  - EMBOLISM [None]
  - EXTREMITY NECROSIS [None]
  - INTERVENTRICULAR SEPTUM RUPTURE [None]
  - MYOCARDIAL INFARCTION [None]
  - RENAL FAILURE [None]
